FAERS Safety Report 7473771-8 (Version None)
Quarter: 2011Q2

REPORT INFORMATION
  Report Type: 
  Country: None (occurrence: None)
  Receive Date: 20110511
  Receipt Date: 20100128
  Transmission Date: 20111010
  Serious: Yes (Other)
  Sender: FDA-Public Use
  Company Number: DE-GENENTECH-318251

PATIENT
  Age: 76 Year
  Sex: Female

DRUGS (3)
  1. LUCENTIS [Suspect]
     Indication: AGE-RELATED MACULAR DEGENERATION
     Dosage: UNK
     Route: 031
     Dates: start: 20090608
  2. SYSTANE [Concomitant]
     Indication: EYE IRRITATION
  3. BEPANTHEN [Concomitant]
     Indication: WOUND

REACTIONS (4)
  - EYE HAEMORRHAGE [None]
  - VISUAL ACUITY REDUCED [None]
  - EYE PRURITUS [None]
  - EYE IRRITATION [None]
